FAERS Safety Report 5948039-9 (Version None)
Quarter: 2008Q4

REPORT INFORMATION
  Report Type: 
  Country: None (occurrence: None)
  Receive Date: 20081111
  Receipt Date: 20081030
  Transmission Date: 20090506
  Serious: Yes (Hospitalization, Other)
  Sender: FDA-Public Use
  Company Number: US-CELGENEUS-163-21880-08101116

PATIENT
  Sex: Male

DRUGS (14)
  1. REVLIMID [Suspect]
     Route: 048
     Dates: start: 20080101
  2. DEXAMETHASONE TAB [Suspect]
     Route: 048
  3. BORTEZOMIB [Suspect]
     Route: 051
  4. METOPROLOL TARTRATE [Concomitant]
     Indication: DRUG USE FOR UNKNOWN INDICATION
     Route: 048
  5. DOCUSATE [Concomitant]
     Indication: DRUG USE FOR UNKNOWN INDICATION
     Route: 048
  6. FLUTICASONE PROPIONATE [Concomitant]
     Indication: DRUG USE FOR UNKNOWN INDICATION
     Route: 045
  7. ALLOPURINOL [Concomitant]
     Indication: DRUG USE FOR UNKNOWN INDICATION
     Route: 048
  8. CALCIUM CARBONATE [Concomitant]
     Indication: DRUG USE FOR UNKNOWN INDICATION
     Route: 048
  9. COUMADIN [Concomitant]
     Route: 048
  10. METFORMIN HYDROCHLORIDE [Concomitant]
     Indication: DIABETES MELLITUS
     Route: 048
  11. GLIPIZIDE [Concomitant]
     Indication: DIABETES MELLITUS
     Route: 048
  12. PROSCAR [Concomitant]
     Route: 065
  13. PULMICORT-100 [Concomitant]
     Indication: DRUG USE FOR UNKNOWN INDICATION
     Route: 065
  14. UROCIT-K [Concomitant]
     Indication: DRUG USE FOR UNKNOWN INDICATION
     Route: 048

REACTIONS (2)
  - CATHETER RELATED INFECTION [None]
  - HERPES VIRUS INFECTION [None]
